FAERS Safety Report 11613410 (Version 4)
Quarter: 2015Q4

REPORT INFORMATION
  Report Type: Spontaneous
  Country: ES (occurrence: ES)
  Receive Date: 20151008
  Receipt Date: 20151109
  Transmission Date: 20160304
  Serious: Yes (Other)
  Sender: FDA-Public Use
  Company Number: ES-AMGEN-ESPSP2015103679

PATIENT
  Age: 84 Year
  Sex: Male

DRUGS (7)
  1. MIMPARA [Suspect]
     Active Substance: CINACALCET HYDROCHLORIDE
     Indication: PRODUCT USED FOR UNKNOWN INDICATION
     Dosage: UNK
     Route: 048
     Dates: start: 2014
  2. SALAGEN [Concomitant]
     Active Substance: PILOCARPINE HYDROCHLORIDE
     Indication: GLAUCOMA
     Dosage: UNK
  3. ALLOPURINOL. [Concomitant]
     Active Substance: ALLOPURINOL
     Dosage: AFTER LUNCH
  4. ASPIRIN                            /00002701/ [Concomitant]
     Active Substance: ASPIRIN
     Dosage: ON MIDDAY
  5. SIMVASTATIN. [Concomitant]
     Active Substance: SIMVASTATIN
     Dosage: AFTER LUNCH
  6. OMEPRAZOLE. [Concomitant]
     Active Substance: OMEPRAZOLE
     Dosage: UNK
  7. HEPARIN [Concomitant]
     Active Substance: HEPARIN SODIUM
     Dosage: 2500 UNK, UNK

REACTIONS (15)
  - Skin burning sensation [Unknown]
  - Decreased appetite [Unknown]
  - Constipation [Unknown]
  - Urinary retention [Unknown]
  - Skin exfoliation [Unknown]
  - Rash [Recovered/Resolved]
  - Dehydration [Unknown]
  - Fluid intake reduced [Unknown]
  - Drug effect incomplete [Unknown]
  - Hypotension [Unknown]
  - Pruritus generalised [Not Recovered/Not Resolved]
  - Dry skin [Unknown]
  - Pruritus [Not Recovered/Not Resolved]
  - Blood parathyroid hormone increased [Recovering/Resolving]
  - Nausea [Unknown]
